FAERS Safety Report 14869055 (Version 1)
Quarter: 2018Q2

REPORT INFORMATION
  Report Type: Spontaneous
  Country: GB (occurrence: GB)
  Receive Date: 20180509
  Receipt Date: 20180509
  Transmission Date: 20180711
  Serious: Yes (Other)
  Sender: FDA-Public Use
  Company Number: GB-ABBVIE-18P-167-2346223-00

PATIENT

DRUGS (1)
  1. DEPAKOTE [Suspect]
     Active Substance: DIVALPROEX SODIUM
     Indication: EPILEPSY
     Route: 065

REACTIONS (3)
  - Hormone level abnormal [Unknown]
  - Bone marrow failure [Unknown]
  - Neutropenia [Unknown]
